FAERS Safety Report 8554757 (Version 3)
Quarter: 2012Q4

REPORT INFORMATION
  Report Type: 
  Country: US (occurrence: US)
  Receive Date: 20120510
  Receipt Date: 20121115
  Transmission Date: 20130627
  Serious: Yes (Hospitalization)
  Sender: FDA-Public Use
  Company Number: US-BIOGENIDEC-2012BI015418

PATIENT
  Age: 43 Year
  Sex: Female

DRUGS (1)
  1. AVONEX [Suspect]
     Indication: MULTIPLE SCLEROSIS
     Route: 030
     Dates: start: 2004, end: 201203

REACTIONS (5)
  - Breast cancer [Recovered/Resolved]
  - Respiratory tract infection [Unknown]
  - Influenza like illness [Unknown]
  - Malaise [Unknown]
  - Drug ineffective [Unknown]
